FAERS Safety Report 9816508 (Version 1)
Quarter: 2014Q1

REPORT INFORMATION
  Report Type: Spontaneous
  Country: HR (occurrence: HR)
  Receive Date: 20140114
  Receipt Date: 20140114
  Transmission Date: 20141002
  Serious: Yes (Other)
  Sender: FDA-Public Use
  Company Number: HR-TEVA-453862ISR

PATIENT
  Age: 62 Year
  Sex: Female
  Weight: 70 kg

DRUGS (3)
  1. VOLTAREN INJEKCIJE [Suspect]
     Indication: SCIATICA
     Dosage: 1 DOSAGE FORMS DAILY; AMPOULES
     Dates: start: 20131102, end: 20131105
  2. DEXAMETHASON KRKA [Suspect]
     Indication: SCIATICA
     Dosage: 1 DOSAGE FORMS DAILY; AMPOULES
     Dates: start: 20131102, end: 20131105
  3. PRITORPLUS [Concomitant]
     Indication: HYPERTENSION
     Dosage: 1 DOSAGE FORMS DAILY;
     Dates: start: 20100202

REACTIONS (3)
  - Chest discomfort [Recovered/Resolved]
  - Choking [Recovered/Resolved]
  - Blister [Recovered/Resolved]
